FAERS Safety Report 16692074 (Version 1)
Quarter: 2019Q3

REPORT INFORMATION
  Report Type: Spontaneous
  Country: IT (occurrence: IT)
  Receive Date: 20190812
  Receipt Date: 20190812
  Transmission Date: 20191004
  Serious: Yes (Other)
  Sender: FDA-Public Use
  Company Number: IT-SA-2019SA218581

PATIENT
  Age: 50 Year

DRUGS (2)
  1. METHOTREXATE. [Suspect]
     Active Substance: METHOTREXATE
     Dosage: UNK
     Dates: start: 201907
  2. KEVZARA [Suspect]
     Active Substance: SARILUMAB
     Dosage: 200 MG
     Dates: start: 201907

REACTIONS (5)
  - Azotaemia [Unknown]
  - Aphthous ulcer [Unknown]
  - Bone marrow failure [Unknown]
  - Pancytopenia [Unknown]
  - Blood creatinine increased [Unknown]
